FAERS Safety Report 25988924 (Version 2)
Quarter: 2025Q4

REPORT INFORMATION
  Report Type: Report from Study
  Country: US (occurrence: US)
  Receive Date: 20251103
  Receipt Date: 20251110
  Transmission Date: 20260117
  Serious: Yes (Other)
  Sender: ABBVIE
  Company Number: US-ABBVIE-6522733

PATIENT
  Age: 29 Year
  Sex: Female

DRUGS (2)
  1. ORILISSA [Suspect]
     Active Substance: ELAGOLIX SODIUM
     Indication: Endometriosis
     Dosage: LAST ADMIN DATE 2025
     Route: 048
     Dates: start: 20250423
  2. ORILISSA [Suspect]
     Active Substance: ELAGOLIX SODIUM
     Indication: Endometriosis
     Dosage: FIRST ADMIN DATE 2025
     Route: 048

REACTIONS (1)
  - Laparoscopic surgery [Unknown]

NARRATIVE: CASE EVENT DATE: 20250523
